FAERS Safety Report 23211205 (Version 1)
Quarter: 2023Q4

REPORT INFORMATION
  Report Type: Spontaneous
  Country: US (occurrence: US)
  Receive Date: 20231121
  Receipt Date: 20231121
  Transmission Date: 20240109
  Serious: No
  Sender: FDA-Public Use
  Company Number: US-SANOFI-01841939

PATIENT
  Age: 43 Year
  Sex: Female

DRUGS (1)
  1. LUMIZYME [Suspect]
     Active Substance: ALGLUCOSIDASE ALFA
     Indication: Glycogen storage disease type II
     Dosage: 20 MG/KG
     Route: 065
     Dates: start: 2016

REACTIONS (4)
  - Sleep apnoea syndrome [Unknown]
  - Respiratory rate decreased [Unknown]
  - Condition aggravated [Unknown]
  - Therapeutic response decreased [Unknown]
